FAERS Safety Report 9695635 (Version 1)
Quarter: 2013Q4

REPORT INFORMATION
  Report Type: Spontaneous
  Country: US (occurrence: US)
  Receive Date: 20131119
  Receipt Date: 20131119
  Transmission Date: 20140711
  Serious: Yes (Disabling)
  Sender: FDA-Public Use
  Company Number: US-SA-2013SA119366

PATIENT
  Age: 59 Year
  Sex: Male

DRUGS (4)
  1. LANTUS SOLOSTAR [Suspect]
     Dosage: TAKEN FROM: OVER A YEAR DOSE:56 UNIT(S)
     Route: 058
  2. SOLOSTAR [Concomitant]
  3. NOVOLOG [Concomitant]
  4. METFORMIN [Concomitant]

REACTIONS (1)
  - Cardiac disorder [Unknown]
